FAERS Safety Report 25933497 (Version 1)
Quarter: 2025Q4

REPORT INFORMATION
  Report Type: Report from Study
  Country: US (occurrence: US)
  Receive Date: 20251017
  Receipt Date: 20251017
  Transmission Date: 20260118
  Serious: Yes (Hospitalization)
  Sender: AMNEAL
  Company Number: US-AMNEAL PHARMACEUTICALS-2025-AMRX-03986

PATIENT

DRUGS (11)
  1. ALYMSYS [Suspect]
     Active Substance: BEVACIZUMAB-MALY
     Indication: Colorectal cancer
     Dosage: 5 MILLIGRAM/KILOGRAM, DAYS 1 AND 15 OF EACH 28-DAY CYCLE
     Route: 042
     Dates: start: 20250428, end: 20250428
  2. ALYMSYS [Suspect]
     Active Substance: BEVACIZUMAB-MALY
     Dosage: 5 MILLIGRAM/KILOGRAM, DAYS 1 AND 15 OF EACH 28-DAY CYCLE
     Route: 042
     Dates: start: 20250825, end: 20250825
  3. INCA-33890 [Suspect]
     Active Substance: INCA-33890
     Indication: Colorectal cancer
     Dosage: 20 MILLIGRAM PER MILLILITER (900 MILLIGRAM DAYS 1 AND 15 OF EACH 28-DAY CYCLE)
     Route: 042
     Dates: start: 20250428, end: 20250428
  4. INCA-33890 [Suspect]
     Active Substance: INCA-33890
     Dosage: 20 MILLIGRAM PER MILLILITER (900 MILLIGRAM DAYS 1 AND 15 OF EACH 28-DAY CYCLE)
     Route: 042
     Dates: start: 20250825, end: 20250825
  5. FLUOROURACIL [Suspect]
     Active Substance: FLUOROURACIL
     Indication: Colorectal cancer
     Dosage: 400 MILLIGRAM/SQ METER, DAYS 1 AND 15 OF EACH 28 DAY CYCLE
     Route: 042
     Dates: start: 20250428, end: 20250428
  6. FLUOROURACIL [Suspect]
     Active Substance: FLUOROURACIL
     Dosage: 2400 MILLIGRAM/SQ. METER, DAYS 1 AND 15 OF EACH 28 DAY CYCLE
     Route: 042
     Dates: start: 20250428, end: 20250430
  7. FLUOROURACIL [Suspect]
     Active Substance: FLUOROURACIL
     Dosage: 2000 MILLIGRAM/SQ. METER, DAYS 1 AND 15 OF EACH 28-DAY CYCLE
     Route: 042
     Dates: start: 20250825, end: 20250827
  8. LEUCOVORIN [Suspect]
     Active Substance: LEUCOVORIN\LEUCOVORIN CALCIUM
     Indication: Colorectal cancer
     Dosage: 400 MILLIGRAM/SQ_ METER, DAYS 1 AND 15 OF EACH 28 DAY CYCLE
     Route: 042
     Dates: start: 20250428, end: 20250428
  9. LEUCOVORIN [Suspect]
     Active Substance: LEUCOVORIN\LEUCOVORIN CALCIUM
     Dosage: 400 MILLIGRAM/SQ_ METER, DAYS 1 AND 15 OF EACH 28 DAY CYCLE
     Route: 042
     Dates: start: 20250825, end: 20250825
  10. OXALIPLATIN [Suspect]
     Active Substance: OXALIPLATIN
     Indication: Colorectal cancer
     Dosage: 85 MILLIGRAM/SQ METER, DAYS 1 AND 15 OF EACH 28  DAY CYCLE
     Route: 042
     Dates: start: 20250428, end: 20250428
  11. OXALIPLATIN [Suspect]
     Active Substance: OXALIPLATIN
     Dosage: 75 MILLIGRAM/SQ METER, DAYS 1 AND 15 OF EACH 28  DAY CYCLE
     Route: 042
     Dates: start: 20250825, end: 20250825

REACTIONS (7)
  - Dysgeusia [Unknown]
  - Hypophagia [Unknown]
  - Dry mouth [Unknown]
  - Weight decreased [Not Recovered/Not Resolved]
  - Asthenia [Unknown]
  - Decreased appetite [Unknown]
  - Vomiting [Unknown]
